FAERS Safety Report 7426272-7 (Version None)
Quarter: 2011Q2

REPORT INFORMATION
  Report Type: 
  Country: None (occurrence: None)
  Receive Date: 20110420
  Receipt Date: 20110414
  Transmission Date: 20111010
  Serious: Yes (Hospitalization)
  Sender: FDA-Public Use
  Company Number: A0903078A

PATIENT
  Age: 61 Year
  Sex: Female
  Weight: 66.4 kg

DRUGS (7)
  1. AVANDAMET [Suspect]
     Route: 048
     Dates: start: 20040101
  2. ALPRAZOLAM [Concomitant]
  3. GLIPIZIDE [Concomitant]
  4. EFFEXOR XR [Concomitant]
  5. AVANDIA [Suspect]
     Indication: DIABETES MELLITUS
     Route: 048
     Dates: start: 20021101, end: 20070301
  6. PREVACID [Concomitant]
  7. VYTORIN [Concomitant]

REACTIONS (4)
  - ISCHAEMIC CARDIOMYOPATHY [None]
  - CARDIAC FAILURE CONGESTIVE [None]
  - CORONARY ARTERY DISEASE [None]
  - CARDIOVASCULAR DISORDER [None]
